FAERS Safety Report 7316370-0 (Version None)
Quarter: 2011Q1

REPORT INFORMATION
  Report Type: 
  Country: None (occurrence: None)
  Receive Date: 20110225
  Receipt Date: 20110216
  Transmission Date: 20110831
  Serious: Yes (Hospitalization)
  Sender: FDA-Public Use
  Company Number: US-ASTRAZENECA-2011SE00826

PATIENT
  Age: 71 Year
  Sex: Male

DRUGS (14)
  1. SYMBICORT [Suspect]
     Indication: CHRONIC OBSTRUCTIVE PULMONARY DISEASE
     Dosage: 80/4.5 MCG 2 PUFFS BID
     Route: 055
     Dates: start: 20080101
  2. COREG [Concomitant]
  3. VITAMIN D [Concomitant]
  4. PERCOCET [Concomitant]
  5. PRILOSEC [Suspect]
     Route: 048
  6. SPIRIVA [Concomitant]
  7. MULTI-VITAMIN [Concomitant]
  8. ASCORBIC ACID [Concomitant]
  9. LIPITOR [Concomitant]
  10. ZOLOFT [Concomitant]
  11. ASPIRIN [Concomitant]
  12. LASIX [Concomitant]
  13. COUMADIN [Concomitant]
  14. VASOTEC [Concomitant]

REACTIONS (3)
  - HIP ARTHROPLASTY [None]
  - DRUG DOSE OMISSION [None]
  - FEELING ABNORMAL [None]
